FAERS Safety Report 4382297-X (Version None)
Quarter: 2004Q2

REPORT INFORMATION
  Report Type: 
  Country: None (occurrence: None)
  Receive Date: 20040621
  Receipt Date: 20040621
  Transmission Date: 20050107
  Serious: Yes (Hospitalization)
  Sender: FDA-Public Use
  Company Number: None

PATIENT
  Age: 76 Year
  Sex: Male
  Weight: 87.2 kg

DRUGS (18)
  1. TAXOL [Suspect]
     Indication: NON-SMALL CELL LUNG CANCER
     Dosage: 200 MG/M2 IV Q 3 WEEKS
     Route: 042
     Dates: start: 20040225
  2. TAXOL [Suspect]
     Indication: NON-SMALL CELL LUNG CANCER
     Dosage: 200 MG/M2 IV Q 3 WEEKS
     Route: 042
     Dates: start: 20040317
  3. TAXOL [Suspect]
     Indication: NON-SMALL CELL LUNG CANCER
     Dosage: 200 MG/M2 IV Q 3 WEEKS
     Route: 042
     Dates: start: 20040413
  4. TAXOL [Suspect]
     Indication: NON-SMALL CELL LUNG CANCER
     Dosage: 200 MG/M2 IV Q 3 WEEKS
     Route: 042
     Dates: start: 20040505
  5. TAXOL [Suspect]
     Indication: NON-SMALL CELL LUNG CANCER
     Dosage: 200 MG/M2 IV Q 3 WEEKS
     Route: 042
     Dates: start: 20040601
  6. CARBOPLATIN [Suspect]
     Dosage: AUC = 6 IV Q 3 WKS
     Route: 042
     Dates: start: 20040225
  7. CARBOPLATIN [Suspect]
     Dosage: AUC = 6 IV Q 3 WKS
     Route: 042
     Dates: start: 20040317
  8. CARBOPLATIN [Suspect]
     Dosage: AUC = 6 IV Q 3 WKS
     Route: 042
     Dates: start: 20040413
  9. CARBOPLATIN [Suspect]
     Dosage: AUC = 6 IV Q 3 WKS
     Route: 042
     Dates: start: 20040505
  10. CARBOPLATIN [Suspect]
     Dosage: AUC = 6 IV Q 3 WKS
     Route: 042
     Dates: start: 20040601
  11. LASIX [Concomitant]
  12. KLOR-CON [Concomitant]
  13. HYDROCODONE [Concomitant]
  14. OXY IR [Concomitant]
  15. MEGACE [Concomitant]
  16. ZYRTEC [Concomitant]
  17. CELEBREX [Concomitant]
  18. SPECTRACEF [Concomitant]

REACTIONS (4)
  - CELLULITIS [None]
  - INFLAMMATION [None]
  - PAIN IN EXTREMITY [None]
  - PHLEBITIS [None]
